FAERS Safety Report 7301570-6 (Version None)
Quarter: 2011Q1

REPORT INFORMATION
  Report Type: 
  Country: None (occurrence: None)
  Receive Date: 20110208
  Receipt Date: 20110203
  Transmission Date: 20110831
  Serious: Yes (Life-Threatening, Hospitalization)
  Sender: FDA-Public Use
  Company Number: 2011SP005268

PATIENT
  Age: 30 Year
  Sex: Female
  Weight: 68 kg

DRUGS (2)
  1. ASPIRIN [Suspect]
     Indication: INFLUENZA LIKE ILLNESS
     Dosage: 500 MG; ; PO
     Route: 048
     Dates: start: 20110122, end: 20110122
  2. AERIUS (DESLORATADINE /01398501/) [Suspect]
     Indication: SWELLING FACE
     Dosage: 5 MG;
     Dates: start: 20110122, end: 20110122

REACTIONS (5)
  - PRURITUS [None]
  - BODY TEMPERATURE INCREASED [None]
  - SWOLLEN TONGUE [None]
  - SWELLING FACE [None]
  - SWELLING [None]
